FAERS Safety Report 20162744 (Version 1)
Quarter: 2021Q4

REPORT INFORMATION
  Report Type: Spontaneous
  Country: US (occurrence: US)
  Receive Date: 20211209
  Receipt Date: 20211209
  Transmission Date: 20220303
  Serious: Yes (Death, Other)
  Sender: FDA-Public Use
  Company Number: US-INGENUS PHARMACEUTICALS, LLC-2021INF000158

PATIENT
  Age: 62 Year
  Sex: Male

DRUGS (3)
  1. ARSENIC TRIOXIDE [Suspect]
     Active Substance: ARSENIC TRIOXIDE
     Indication: Acute promyelocytic leukaemia
     Dosage: 0.15 MILLIGRAM/KILOGRAM, QD, ON DAY 2
     Route: 065
  2. TRETINOIN [Suspect]
     Active Substance: TRETINOIN
     Indication: Acute promyelocytic leukaemia
     Dosage: 45 MILLIGRAM/SQ. METER
     Route: 065
  3. DEXAMETHASONE [Concomitant]
     Active Substance: DEXAMETHASONE
     Indication: Prophylaxis
     Dosage: 10 MILLIGRAM, QD
     Route: 065

REACTIONS (6)
  - Acute myocardial infarction [Fatal]
  - Transaminases increased [Fatal]
  - Disseminated intravascular coagulation [Fatal]
  - Acute kidney injury [Fatal]
  - Acute respiratory distress syndrome [Fatal]
  - Differentiation syndrome [Fatal]
